FAERS Safety Report 6999234-1 (Version None)
Quarter: 2010Q3

REPORT INFORMATION
  Report Type: 
  Country: None (occurrence: None)
  Receive Date: 20100920
  Receipt Date: 20100405
  Transmission Date: 20110219
  Serious: No
  Sender: FDA-Public Use
  Company Number: US-ASTRAZENECA-2010SE14785

PATIENT
  Sex: Female
  Weight: 66.7 kg

DRUGS (4)
  1. SEROQUEL [Suspect]
     Indication: ALCOHOL WITHDRAWAL SYNDROME
     Route: 048
     Dates: start: 20080401
  2. BIRTH CONTROL [Concomitant]
     Indication: CONTRACEPTION
  3. CLORAZEPATE DIPOTASSIUM [Concomitant]
     Indication: ALCOHOL WITHDRAWAL SYNDROME
     Route: 048
     Dates: start: 20090401
  4. PROZAC [Concomitant]
     Route: 048
     Dates: start: 20080101

REACTIONS (3)
  - ANXIETY [None]
  - INCORRECT DOSE ADMINISTERED [None]
  - TREMOR [None]
